FAERS Safety Report 7150645-3 (Version None)
Quarter: 2010Q4

REPORT INFORMATION
  Report Type: 
  Country: None (occurrence: None)
  Receive Date: 20101124
  Receipt Date: 20101108
  Transmission Date: 20110411
  Serious: Yes (Hospitalization)
  Sender: FDA-Public Use
  Company Number: DSA_44328_2010

PATIENT
  Age: 87 Year
  Sex: Female

DRUGS (6)
  1. ENALAPRIL MALEATE [Suspect]
     Indication: PRODUCT USED FOR UNKNOWN INDICATION
     Dosage: DF ORAL
     Route: 048
     Dates: end: 20100518
  2. DIGOXIN [Suspect]
     Indication: ATRIAL FIBRILLATION
     Dosage: DF ORAL
     Route: 048
     Dates: end: 20100518
  3. SPIRONOLACTONE [Suspect]
     Indication: PRODUCT USED FOR UNKNOWN INDICATION
     Dosage: DF ORAL
     Route: 048
     Dates: end: 20100518
  4. ATENOLOL [Concomitant]
  5. FELODIPINE [Concomitant]
  6. WARAN [Concomitant]

REACTIONS (4)
  - BLOOD CREATININE INCREASED [None]
  - CONFUSIONAL STATE [None]
  - HALLUCINATION [None]
  - HYPERKALAEMIA [None]
